FAERS Safety Report 8063136-2 (Version None)
Quarter: 2012Q1

REPORT INFORMATION
  Report Type: 
  Country: None (occurrence: None)
  Receive Date: 20120123
  Receipt Date: 20120117
  Transmission Date: 20120608
  Serious: Yes (Life-Threatening, Hospitalization, Other)
  Sender: FDA-Public Use
  Company Number: FR-PFIZER INC-2011017347

PATIENT
  Age: 81 Year
  Sex: Male

DRUGS (15)
  1. IVABRADINE [Interacting]
     Indication: CARDIAC FAILURE
     Dosage: 5 MG, 1X/DAY
     Dates: end: 20101209
  2. BRONCHODUAL [Concomitant]
     Dosage: UNK
  3. SPIRIVA [Concomitant]
     Dosage: UNK
  4. ALLOPURINOL [Concomitant]
     Dosage: UNK
  5. NOCTRAN 10 [Concomitant]
     Dosage: UNK
  6. ASPIRIN [Concomitant]
     Dosage: UNK
     Dates: end: 20101210
  7. FENOFIBRATE [Concomitant]
     Dosage: UNK
  8. LASIX [Interacting]
     Indication: CARDIAC FAILURE
  9. DIGOXIN [Interacting]
     Indication: CARDIAC FAILURE
     Dosage: 0.50 MG, 1X/DAY
     Route: 048
     Dates: end: 20101209
  10. ACETAMINOPHEN [Concomitant]
     Dosage: UNK
  11. CORDARONE [Suspect]
     Indication: CARDIAC FAILURE
     Dosage: 200 MILLIGRAM(S);DAILY
     Route: 048
     Dates: end: 20101209
  12. BUDESONIDE/FORMOTEROL FUMARATE [Concomitant]
     Dosage: UNK
  13. RAMIPRIL [Interacting]
     Indication: CARDIAC FAILURE
     Dosage: 10 MG DAILY
     Route: 048
     Dates: end: 20101209
  14. LASIX [Interacting]
     Indication: PRODUCT USED FOR UNKNOWN INDICATION
     Dosage: FIRST 40 MG DAILY, THEN 30 MG DAILY THEN 20 MG
     Route: 048
     Dates: end: 20101209
  15. XYZAL [Concomitant]
     Dosage: UNK

REACTIONS (13)
  - DRUG INTERACTION [None]
  - PULMONARY OEDEMA [None]
  - BLINDNESS UNILATERAL [None]
  - CARDIOACTIVE DRUG LEVEL INCREASED [None]
  - OEDEMA PERIPHERAL [None]
  - BRADYCARDIA [None]
  - HYPOTENSION [None]
  - NAUSEA [None]
  - RENAL FAILURE ACUTE [None]
  - THROMBOCYTOPENIA [None]
  - LUNG DISORDER [None]
  - DEHYDRATION [None]
  - VOMITING [None]
